FAERS Safety Report 9540165 (Version 1)
Quarter: 2013Q2

REPORT INFORMATION
  Report Type: Spontaneous
  Country: US (occurrence: None)
  Receive Date: 20130503
  Receipt Date: 20130503
  Transmission Date: 20140414
  Serious: No
  Sender: FDA-Public Use
  Company Number: 1000042424

PATIENT
  Age: 89 Year
  Sex: Female

DRUGS (13)
  1. DALIRESP (ROFLUMILAST) (500 MICROGRAM, TABLETS) [Suspect]
     Indication: CHRONIC OBSTRUCTIVE PULMONARY DISEASE
     Dosage: 1) 500MCG EVERY THREE DAYS (500 MCG,EVERY THREE DAYS),ORAL
     Dates: start: 20130122, end: 20130131
  2. ADVAIR(SERETIDE)(SERETIDE) [Concomitant]
  3. SPIRIVA(TIOTROPIUM BROMIDE)(TIOTROPIUM BROMIDE) [Concomitant]
  4. SYNTHROID(LEVOTHYROXINE SODIUM)(LEVOTHYROXINE SODIUM) [Concomitant]
  5. CELEBREX(CELECOXIB)(CELECOXIB) [Concomitant]
  6. PRAVASTATIN(PRAVASTATIN)(PRAVASTATIN) [Concomitant]
  7. ASPIRIN(ACETYLSALICYLIC ACID)(ACETYLSALICYLIC ACID) [Concomitant]
  8. FAMOTIDINE(FAMOTIDINE)(FAMOTIDINE) [Concomitant]
  9. PREDNISONE(PREDNISONE)(PREDNISONE) [Concomitant]
  10. ARICEPT(DONEPEZIL HYDROCHLORIDE)(DONEPEZIL HYDROCHLORIDE) [Concomitant]
  11. ZOLOFT(SERTRALINE HYDROCHLORIDE)(SERTRALINE HYDROCHLORIDE) [Concomitant]
  12. CARAFATE (SUCRALFATE) (SUCRALFATE) [Concomitant]
  13. TRAMADOL (TRAMADOL) (TRAMADOL) [Concomitant]

REACTIONS (2)
  - Back pain [None]
  - Mood altered [None]
